FAERS Safety Report 25041948 (Version 1)
Quarter: 2025Q1

REPORT INFORMATION
  Report Type: Spontaneous
  Country: JP (occurrence: JP)
  Receive Date: 20250305
  Receipt Date: 20250305
  Transmission Date: 20250408
  Serious: Yes (Other)
  Sender: SANDOZ
  Company Number: JP-asahikaseip-2024-AER-02227

PATIENT
  Age: 8 Decade
  Sex: Female

DRUGS (2)
  1. RECLAST [Suspect]
     Active Substance: ZOLEDRONIC ACID
     Indication: Osteoporosis
     Route: 041
     Dates: start: 2023
  2. RECLAST [Suspect]
     Active Substance: ZOLEDRONIC ACID
     Route: 041
     Dates: end: 20240112

REACTIONS (1)
  - Osteonecrosis of jaw [Recovering/Resolving]

NARRATIVE: CASE EVENT DATE: 20240419
